FAERS Safety Report 9296956 (Version 1)
Quarter: 2013Q2

REPORT INFORMATION
  Report Type: Report from Study
  Country: GB (occurrence: GB)
  Receive Date: 20130518
  Receipt Date: 20130518
  Transmission Date: 20140414
  Serious: Yes (Hospitalization)
  Sender: FDA-Public Use
  Company Number: GB-ROCHE-1202667

PATIENT
  Age: 62 Year
  Sex: Female
  Weight: 117 kg

DRUGS (1)
  1. RITUXIMAB [Suspect]
     Indication: RHEUMATOID ARTHRITIS
     Dosage: LAST DOSE PRIOR TO SAE 01/NOV/2012
     Route: 065
     Dates: start: 20120314

REACTIONS (4)
  - Ventricular tachycardia [Unknown]
  - Swelling face [Recovered/Resolved]
  - Lower respiratory tract infection [Unknown]
  - Urinary tract infection [Unknown]
